FAERS Safety Report 11691904 (Version 1)
Quarter: 2015Q4

REPORT INFORMATION
  Report Type: Report from Study
  Country: CA (occurrence: CA)
  Receive Date: 20151103
  Receipt Date: 20151103
  Transmission Date: 20160304
  Serious: Yes (Other)
  Sender: FDA-Public Use
  Company Number: CA-ROCHE-1654302

PATIENT
  Age: 80 Year
  Sex: Male

DRUGS (9)
  1. CELEBREX [Concomitant]
     Active Substance: CELECOXIB
  2. NORVASC [Concomitant]
     Active Substance: AMLODIPINE BESYLATE
  3. RANIBIZUMAB [Suspect]
     Active Substance: RANIBIZUMAB
     Indication: DRY AGE-RELATED MACULAR DEGENERATION
  4. ELTROXIN [Concomitant]
     Active Substance: LEVOTHYROXINE
  5. ASA [Concomitant]
     Active Substance: ASPIRIN
  6. VITALUX-S [Concomitant]
  7. HYDROCHLOROTHIAZIDE. [Concomitant]
     Active Substance: HYDROCHLOROTHIAZIDE
  8. RANIBIZUMAB [Suspect]
     Active Substance: RANIBIZUMAB
     Indication: CHOROIDAL NEOVASCULARISATION
     Route: 050
  9. IRBESARTAN. [Concomitant]
     Active Substance: IRBESARTAN

REACTIONS (1)
  - Visual acuity reduced [Recovered/Resolved]

NARRATIVE: CASE EVENT DATE: 20151016
